FAERS Safety Report 4692400-X (Version None)
Quarter: 2005Q2

REPORT INFORMATION
  Report Type: 
  Country: None (occurrence: None)
  Receive Date: 20050616
  Receipt Date: 20050601
  Transmission Date: 20051028
  Serious: Yes (Hospitalization)
  Sender: FDA-Public Use
  Company Number: JP_050606693

PATIENT
  Age: 56 Year
  Sex: Female
  Weight: 38 kg

DRUGS (6)
  1. ZYPREXA [Suspect]
     Indication: SCHIZOPHRENIA
     Dosage: 10 MG DAY
     Dates: start: 20040520
  2. MERCAZOLE (THIAMAZOLE) [Concomitant]
  3. ROHYPNOL (FLUNITRAZEPAM) [Concomitant]
  4. TASMOLIN ( (BIPERIDEN) [Concomitant]
  5. PAXYL [Concomitant]
  6. LENDORM [Concomitant]

REACTIONS (3)
  - DEPRESSION [None]
  - SOMNOLENCE [None]
  - TREMOR [None]
